FAERS Safety Report 7525215-5 (Version None)
Quarter: 2011Q2

REPORT INFORMATION
  Report Type: 
  Country: None (occurrence: None)
  Receive Date: 20110602
  Receipt Date: 20110602
  Transmission Date: 20111010
  Serious: No
  Sender: FDA-Public Use
  Company Number: None

PATIENT
  Sex: Male
  Weight: 84.1 kg

DRUGS (2)
  1. AMOXICILLIN AND CLAVULANATE POTASSIUM [Suspect]
     Indication: EAR INFECTION
     Dosage: 500-125 MG 3XDAILY BY MOUTH
     Route: 048
     Dates: start: 20110302, end: 20110304
  2. AMOXICILLIN AND CLAVULANATE POTASSIUM [Suspect]
     Indication: TYMPANIC MEMBRANE PERFORATION
     Dosage: 500-125 MG 3XDAILY BY MOUTH
     Route: 048
     Dates: start: 20110302, end: 20110304

REACTIONS (14)
  - NAUSEA [None]
  - ARTHRALGIA [None]
  - MUSCULAR WEAKNESS [None]
  - BILIARY TRACT DISORDER [None]
  - AGITATION [None]
  - OCULAR ICTERUS [None]
  - ABDOMINAL PAIN UPPER [None]
  - PRURITUS [None]
  - FATIGUE [None]
  - ABDOMINAL PAIN [None]
  - YELLOW SKIN [None]
  - HEPATIC FAILURE [None]
  - CHROMATURIA [None]
  - CONSTIPATION [None]
